FAERS Safety Report 9796545 (Version 1)
Quarter: 2014Q1

REPORT INFORMATION
  Report Type: Spontaneous
  Country: US (occurrence: US)
  Receive Date: 20140103
  Receipt Date: 20140103
  Transmission Date: 20141002
  Serious: Yes (Other)
  Sender: FDA-Public Use
  Company Number: US-PFIZER INC-2013374625

PATIENT
  Sex: 0

DRUGS (1)
  1. ZITHROMAX [Suspect]
     Dosage: UNK
     Dates: start: 201007

REACTIONS (2)
  - Coeliac disease [Unknown]
  - Constipation [Unknown]
